FAERS Safety Report 5678370-6 (Version None)
Quarter: 2008Q1

REPORT INFORMATION
  Report Type: 
  Country: None (occurrence: None)
  Receive Date: 20080320
  Receipt Date: 20080310
  Transmission Date: 20080703
  Serious: Yes (Hospitalization, Disabling)
  Sender: FDA-Public Use
  Company Number: 100#08#2008-01302

PATIENT
  Age: 85 Year
  Sex: Female

DRUGS (6)
  1. PRAMIPEXOLE DIHYDROCHLORIDE [Suspect]
     Indication: DRUG USE FOR UNKNOWN INDICATION
     Dosage: 0.18 MG
  2. OMEPRAZOLE [Concomitant]
  3. ACETYLSALICYLIC ACID SRT [Concomitant]
  4. DONEPEZIL HCL [Concomitant]
  5. NIMODIPINE (DROPS) (NIMODIPINE) [Concomitant]
  6. CARBIDOPA AND LEVODOPA [Concomitant]

REACTIONS (6)
  - BALANCE DISORDER [None]
  - DEPRESSED LEVEL OF CONSCIOUSNESS [None]
  - FALL [None]
  - IMPAIRED SELF-CARE [None]
  - PARKINSONISM [None]
  - SOMNOLENCE [None]
